FAERS Safety Report 9982780 (Version 1)
Quarter: 2014Q1

REPORT INFORMATION
  Report Type: Report from Study
  Country: US (occurrence: US)
  Receive Date: 20140307
  Receipt Date: 20140307
  Transmission Date: 20141002
  Serious: No
  Sender: FDA-Public Use
  Company Number: US-ABBVIE-13P-163-1180926-00

PATIENT
  Age: 37 Year
  Sex: Male

DRUGS (5)
  1. HUMIRA [Suspect]
     Indication: PSORIASIS
     Dates: start: 2010
  2. FOLIC ACID [Concomitant]
     Indication: PRODUCT USED FOR UNKNOWN INDICATION
  3. METHOTREXATE [Concomitant]
     Indication: PRODUCT USED FOR UNKNOWN INDICATION
     Dosage: WEEKLY
  4. LISINOPRIL [Concomitant]
     Indication: HYPERTENSION
  5. VIT D [Concomitant]
     Indication: VITAMIN SUPPLEMENTATION

REACTIONS (1)
  - Tooth infection [Not Recovered/Not Resolved]
